FAERS Safety Report 6753852-4 (Version None)
Quarter: 2010Q2

REPORT INFORMATION
  Report Type: 
  Country: None (occurrence: None)
  Receive Date: 20100603
  Receipt Date: 20100520
  Transmission Date: 20101027
  Serious: Yes (Other)
  Sender: FDA-Public Use
  Company Number: MY-ELI_LILLY_AND_COMPANY-MY201005006393

PATIENT
  Age: 24 Year
  Sex: Female

DRUGS (2)
  1. ZYPREXA [Suspect]
     Indication: SCHIZOPHRENIA
     Dosage: 30 MG, DAILY (1/D)
     Route: 048
  2. VALPROATE SODIUM [Concomitant]
     Indication: SCHIZOPHRENIA
     Dosage: 2 G, DAILY (1/D)
     Route: 048

REACTIONS (4)
  - DRUG RASH WITH EOSINOPHILIA AND SYSTEMIC SYMPTOMS [None]
  - HEPATITIS [None]
  - OVERDOSE [None]
  - RASH MACULO-PAPULAR [None]
